FAERS Safety Report 12552282 (Version 1)
Quarter: 2016Q3

REPORT INFORMATION
  Report Type: Spontaneous
  Country: US (occurrence: None)
  Receive Date: 20160712
  Receipt Date: 20160712
  Transmission Date: 20161109
  Serious: Yes (Hospitalization, Other)
  Sender: FDA-Public Use
  Company Number: None

PATIENT
  Age: 24 Year
  Sex: Male
  Weight: 99.79 kg

DRUGS (10)
  1. VITAMIN E [Concomitant]
     Active Substance: .ALPHA.-TOCOPHEROL
  2. TRAZODONE, 100 MG [Suspect]
     Active Substance: TRAZODONE HYDROCHLORIDE
     Indication: SLEEP DISORDER
     Dosage: 2 TABLESPOON(S) AT BEDTIME TAKEN BY MOUTH
     Route: 048
     Dates: start: 20160601, end: 20160710
  3. 1-THIANINE [Concomitant]
  4. GABA [Concomitant]
     Active Substance: .GAMMA.-AMINOBUTYRIC ACID
  5. ZYPREXA [Suspect]
     Active Substance: OLANZAPINE
     Indication: PSYCHOTIC DISORDER
     Route: 048
     Dates: start: 20160601, end: 20160710
  6. MULTIPLE VITAMIN [Concomitant]
     Active Substance: VITAMINS
  7. ZYPREXA [Suspect]
     Active Substance: OLANZAPINE
     Indication: SLEEP DISORDER
     Route: 048
     Dates: start: 20160601, end: 20160710
  8. MELATONING [Concomitant]
  9. VITAMIN D [Concomitant]
     Active Substance: CHOLECALCIFEROL
  10. NEURO PS [Concomitant]

REACTIONS (3)
  - Mania [None]
  - Psychotic disorder [None]
  - Delusion [None]

NARRATIVE: CASE EVENT DATE: 20160601
